FAERS Safety Report 8814524 (Version 3)
Quarter: 2012Q4

REPORT INFORMATION
  Report Type: 
  Country: NL (occurrence: NL)
  Receive Date: 20120928
  Receipt Date: 20121011
  Transmission Date: 20130627
  Serious: Yes (Death)
  Sender: FDA-Public Use
  Company Number: PHHY2012NL084240

PATIENT
  Sex: Female
  Weight: 66 kg

DRUGS (6)
  1. ZOMETA [Suspect]
     Indication: MULTIPLE MYELOMA
     Dosage: 4 mg, per 100ml per 28 days
     Dates: start: 201110
  2. ZOMETA [Suspect]
     Dosage: 4 mg, per 100ml per 28 days
     Dates: start: 20120228
  3. ZOMETA [Suspect]
     Dosage: 4 mg, per 100ml per 28 days
     Dates: start: 20120521
  4. ZOMETA [Suspect]
     Dosage: 4 mg, per 100ml per 28 days
     Dates: start: 20120703
  5. ACETOSAL [Concomitant]
  6. PREDNISONE [Concomitant]

REACTIONS (5)
  - Pneumonia [Fatal]
  - Hyperviscosity syndrome [Fatal]
  - Plasma cell myeloma [Fatal]
  - Asthenia [Unknown]
  - Malaise [Unknown]
